FAERS Safety Report 16707970 (Version 3)
Quarter: 2020Q2

REPORT INFORMATION
  Report Type: Report from Study
  Country: CO (occurrence: CO)
  Receive Date: 20190815
  Receipt Date: 20200528
  Transmission Date: 20200713
  Serious: Yes (Hospitalization, Other)
  Sender: FDA-Public Use
  Company Number: CO-ELI_LILLY_AND_COMPANY-CO201908006514

PATIENT
  Age: 77 Year
  Sex: Female

DRUGS (6)
  1. TERIPARATIDE [Suspect]
     Active Substance: TERIPARATIDE
     Indication: OSTEOPOROSIS
     Dosage: 20 UG, DAILY
     Route: 058
     Dates: start: 2013
  2. OXYGEN. [Concomitant]
     Active Substance: OXYGEN
     Indication: CHRONIC OBSTRUCTIVE PULMONARY DISEASE
  3. LOSARTAN. [Concomitant]
     Active Substance: LOSARTAN
     Indication: HYPERTENSION
  4. TRAMADOL. [Suspect]
     Active Substance: TRAMADOL
     Indication: SPINAL PAIN
     Dosage: UNK UNK, UNKNOWN
     Route: 065
  5. IPRATROPIUM BROMIDE. [Concomitant]
     Active Substance: IPRATROPIUM BROMIDE
     Indication: CHRONIC OBSTRUCTIVE PULMONARY DISEASE
  6. DIPYRONE [Suspect]
     Active Substance: DIPYRONE
     Indication: SPINAL PAIN
     Dosage: UNK UNK, UNKNOWN
     Route: 065

REACTIONS (13)
  - Upper limb fracture [Unknown]
  - Angina pectoris [Not Recovered/Not Resolved]
  - Spinal pain [Not Recovered/Not Resolved]
  - Dyspnoea [Unknown]
  - Lethargy [Unknown]
  - Heart rate increased [Unknown]
  - Back pain [Unknown]
  - Blood pressure increased [Unknown]
  - Myocardial infarction [Unknown]
  - Cardiac failure [Not Recovered/Not Resolved]
  - Upper limb fracture [Unknown]
  - Chest pain [Not Recovered/Not Resolved]
  - Hyperhidrosis [Unknown]

NARRATIVE: CASE EVENT DATE: 20150720
